FAERS Safety Report 7756443-1 (Version None)
Quarter: 2011Q3

REPORT INFORMATION
  Report Type: 
  Country: None (occurrence: None)
  Receive Date: 20110915
  Receipt Date: 20110915
  Transmission Date: 20111222
  Serious: Yes (Hospitalization)
  Sender: FDA-Public Use
  Company Number: None

PATIENT
  Age: 52 Year
  Sex: Female
  Weight: 68.0396 kg

DRUGS (1)
  1. CLOZAPINE [Suspect]
     Dosage: 12.5 MG PO BID
     Route: 048
     Dates: start: 20110712, end: 20110721

REACTIONS (2)
  - WHITE BLOOD CELL COUNT DECREASED [None]
  - BAND NEUTROPHIL COUNT DECREASED [None]
